FAERS Safety Report 10056284 (Version 1)
Quarter: 2014Q2

REPORT INFORMATION
  Report Type: Spontaneous
  Country: US (occurrence: US)
  Receive Date: 20140403
  Receipt Date: 20140403
  Transmission Date: 20141212
  Serious: No
  Sender: FDA-Public Use
  Company Number: US-BAYER-2014-049658

PATIENT
  Age: 82 Year
  Sex: Female
  Weight: 49.89 kg

DRUGS (3)
  1. ALEVE TABLET [Suspect]
     Indication: ANALGESIC THERAPY
     Dosage: 1 DF, BID
     Route: 048
     Dates: start: 201310
  2. ALEVE TABLET [Suspect]
     Indication: SPINAL OSTEOARTHRITIS
  3. BENICAR [Concomitant]

REACTIONS (1)
  - Incorrect drug administration duration [None]
